FAERS Safety Report 18627543 (Version 1)
Quarter: 2020Q4

REPORT INFORMATION
  Report Type: Spontaneous
  Country: US (occurrence: US)
  Receive Date: 20201216
  Receipt Date: 20201216
  Transmission Date: 20210114
  Serious: No
  Sender: FDA-Public Use
  Company Number: None

PATIENT
  Age: 31 Year
  Sex: Female

DRUGS (5)
  1. FLUOXETINE HCL [Concomitant]
     Active Substance: FLUOXETINE HYDROCHLORIDE
  2. ENBREL [Suspect]
     Active Substance: ETANERCEPT
  3. LEFLUNOMIDE. [Concomitant]
     Active Substance: LEFLUNOMIDE
  4. FOLIC ACID. [Concomitant]
     Active Substance: FOLIC ACID
  5. HUMIRA [Suspect]
     Active Substance: ADALIMUMAB
     Indication: STILL^S DISEASE

REACTIONS (2)
  - Renal cyst [None]
  - Injection site reaction [None]

NARRATIVE: CASE EVENT DATE: 20201216
